FAERS Safety Report 8193670-6 (Version None)
Quarter: 2012Q1

REPORT INFORMATION
  Report Type: 
  Country: None (occurrence: None)
  Receive Date: 20120308
  Receipt Date: 20120229
  Transmission Date: 20120608
  Serious: Yes (Other)
  Sender: FDA-Public Use
  Company Number: CA-JNJFOC-20120301414

PATIENT
  Sex: Female
  Weight: 115 kg

DRUGS (7)
  1. REMICADE [Suspect]
     Indication: CROHN'S DISEASE
     Dosage: LD3
     Route: 042
     Dates: start: 20120106
  2. LEVOTHYROXINE SODIUM [Concomitant]
     Route: 065
  3. CORTENEMA [Concomitant]
     Dosage: AS NEEDED
     Route: 065
  4. MICARDIS [Concomitant]
     Route: 065
  5. AZATHIOPRINE [Concomitant]
     Route: 065
  6. REMICADE [Suspect]
     Route: 042
     Dates: start: 20120229
  7. CALTRATE AND VITAMIN D [Concomitant]
     Route: 065

REACTIONS (6)
  - ERYTHEMA [None]
  - URTICARIA [None]
  - PERIORBITAL OEDEMA [None]
  - INFUSION RELATED REACTION [None]
  - PRURITUS [None]
  - FLUSHING [None]
